FAERS Safety Report 8221370-2 (Version None)
Quarter: 2012Q1

REPORT INFORMATION
  Report Type: 
  Country: None (occurrence: None)
  Receive Date: 20120320
  Receipt Date: 20120314
  Transmission Date: 20120608
  Serious: Yes (Hospitalization, Other)
  Sender: FDA-Public Use
  Company Number: AU-B.I. PHARMACEUTICALS,INC./RIDGEFIELD-2012-AU-00545AU

PATIENT
  Sex: Male

DRUGS (2)
  1. PRADAXA [Suspect]
     Dosage: 220 MG
  2. ASPIRIN [Concomitant]

REACTIONS (1)
  - CEREBROVASCULAR ACCIDENT [None]
